FAERS Safety Report 21108003 (Version 1)
Quarter: 2022Q3

REPORT INFORMATION
  Report Type: Spontaneous
  Country: US (occurrence: US)
  Receive Date: 20220720
  Receipt Date: 20220720
  Transmission Date: 20221027
  Serious: No
  Sender: FDA-Public Use
  Company Number: US-SA-SAC20220718000300

PATIENT
  Age: 19 Year
  Sex: Female
  Weight: 61 kg

DRUGS (6)
  1. DUPIXENT [Suspect]
     Active Substance: DUPILUMAB
     Indication: Chronic rhinosinusitis with nasal polyps
     Dosage: 300 MG, QOW
     Route: 058
     Dates: start: 20220630
  2. OMEPRAZOLE [Concomitant]
     Active Substance: OMEPRAZOLE
  3. MELOXICAM [Concomitant]
     Active Substance: MELOXICAM
  4. CYPROHEPTADINE HYDROCHLORIDE [Concomitant]
     Active Substance: CYPROHEPTADINE HYDROCHLORIDE
  5. SINGULAIR [Concomitant]
     Active Substance: MONTELUKAST SODIUM
  6. BALSALAZIDE DISODIUM [Concomitant]
     Active Substance: BALSALAZIDE DISODIUM

REACTIONS (1)
  - Blepharospasm [Unknown]

NARRATIVE: CASE EVENT DATE: 20220701
